FAERS Safety Report 19474766 (Version 1)
Quarter: 2021Q2

REPORT INFORMATION
  Report Type: Spontaneous
  Country: FR (occurrence: FR)
  Receive Date: 20210630
  Receipt Date: 20210630
  Transmission Date: 20210717
  Serious: Yes (Life-Threatening, Hospitalization, Other)
  Sender: FDA-Public Use
  Company Number: FR-GRANULES-FR-2021GRALIT00361

PATIENT
  Age: 19 Year
  Sex: Male

DRUGS (7)
  1. SUFENTANIL [Interacting]
     Active Substance: SUFENTANIL
     Indication: SEDATION
     Route: 065
  2. EPINEPHRINE. [Interacting]
     Active Substance: EPINEPHRINE
     Indication: MEAN ARTERIAL PRESSURE
     Dosage: PER HOUR
     Route: 065
  3. MIDAZOLAM. [Interacting]
     Active Substance: MIDAZOLAM
     Indication: SEDATION
     Route: 065
  4. ATROPINE. [Interacting]
     Active Substance: ATROPINE
     Indication: BRADYCARDIA
     Route: 065
  5. AMPHETAMINE SULFATE. [Suspect]
     Active Substance: AMPHETAMINE SULFATE
     Indication: PRODUCT USED FOR UNKNOWN INDICATION
     Route: 065
  6. AMIODARONE [Interacting]
     Active Substance: AMIODARONE
     Indication: ARRHYTHMIA
     Route: 065
  7. EPINEPHRINE. [Interacting]
     Active Substance: EPINEPHRINE
     Indication: CARDIAC ARREST
     Dosage: EVERY 3 MINUTES
     Route: 065

REACTIONS (3)
  - Stress cardiomyopathy [Recovered/Resolved]
  - Cardiogenic shock [Recovered/Resolved]
  - Cardiac arrest [Recovered/Resolved]
